FAERS Safety Report 8494600-X (Version None)
Quarter: 2012Q3

REPORT INFORMATION
  Report Type: 
  Country: None (occurrence: None)
  Receive Date: 20120709
  Receipt Date: 20120627
  Transmission Date: 20120928
  Serious: Yes (Other)
  Sender: FDA-Public Use
  Company Number: JP-JNJFOC-20120700779

PATIENT
  Age: 35 Year
  Sex: Male

DRUGS (4)
  1. MERCAPTOPURINE [Suspect]
     Indication: CROHN'S DISEASE
     Route: 065
     Dates: start: 20020201
  2. MESALAMINE [Concomitant]
     Indication: CROHN'S DISEASE
     Route: 065
     Dates: start: 20040101
  3. REMICADE [Suspect]
     Indication: CROHN'S DISEASE
     Route: 042
     Dates: start: 20020201
  4. REMICADE [Suspect]
     Route: 042
     Dates: start: 20070201

REACTIONS (3)
  - WHITE BLOOD CELL COUNT DECREASED [None]
  - INFUSION RELATED REACTION [None]
  - DRUG INEFFECTIVE [None]
